FAERS Safety Report 4844784-7 (Version None)
Quarter: 2005Q4

REPORT INFORMATION
  Report Type: 
  Country: None (occurrence: None)
  Receive Date: 20051205
  Receipt Date: 20051123
  Transmission Date: 20060501
  Serious: Yes (Hospitalization)
  Sender: FDA-Public Use
  Company Number: FR-SOLVAY-00205004023

PATIENT
  Age: 78 Year
  Sex: Female

DRUGS (5)
  1. BAYPRESS [Concomitant]
     Indication: ILL-DEFINED DISORDER
     Dosage: DAILY DOSE:  UNKNOWN
     Route: 065
  2. COVERSYL [Suspect]
     Indication: ESSENTIAL HYPERTENSION
     Dosage: DAILY DOSE: 4 MILLIGRAM(S)
     Route: 048
  3. LIPANTHYL [Concomitant]
     Indication: ILL-DEFINED DISORDER
     Dosage: DAILY DOSE:  UNKNOWN
     Route: 065
  4. DIAMICRON [Suspect]
     Indication: DIABETES MELLITUS
     Dosage: DAILY DOSE: 90 MILLIGRAM(S)
     Route: 048
  5. LASILIX [Suspect]
     Indication: ESSENTIAL HYPERTENSION
     Dosage: DAILY DOSE: 60 MILLIGRAM(S)
     Route: 048

REACTIONS (1)
  - HYPOGLYCAEMIA [None]
